FAERS Safety Report 8087328-1 (Version None)
Quarter: 2012Q1

REPORT INFORMATION
  Report Type: 
  Country: None (occurrence: None)
  Receive Date: 20120128
  Receipt Date: 20110420
  Transmission Date: 20120608
  Serious: No
  Sender: FDA-Public Use
  Company Number: US-ABBOTT-11P-163-0720714-00

PATIENT
  Age: 49 Year
  Sex: Female

DRUGS (7)
  1. HUMIRA [Suspect]
     Dates: start: 20100901
  2. ZOLOFT [Concomitant]
     Indication: DEPRESSION
  3. SIMVASTATIN [Concomitant]
     Indication: BLOOD CHOLESTEROL INCREASED
     Dosage: AT BEDTIME
  4. TRIAMTERENE [Concomitant]
     Indication: JOINT SWELLING
  5. HUMIRA [Suspect]
     Indication: PSORIASIS
     Dates: start: 20090901
  6. HUMIRA [Suspect]
     Dates: start: 20090901
  7. TRIAMTERENE [Concomitant]
     Indication: FLUID RETENTION
     Dosage: 37.5/25MG EVERY MORNING (WATER PILL)

REACTIONS (4)
  - INTERVERTEBRAL DISC DISORDER [None]
  - NERVE COMPRESSION [None]
  - OEDEMA PERIPHERAL [None]
  - HYPOAESTHESIA [None]
